FAERS Safety Report 9030278 (Version 1)
Quarter: 2013Q1

REPORT INFORMATION
  Report Type: Spontaneous
  Country: TR (occurrence: TR)
  Receive Date: 20130122
  Receipt Date: 20130122
  Transmission Date: 20140127
  Serious: Yes (Other)
  Sender: FDA-Public Use
  Company Number: TR-ASTRAZENECA-2013SE03292

PATIENT
  Age: 35 Year
  Sex: Male

DRUGS (2)
  1. LIDOCAINE [Suspect]
     Dosage: 2% LESS THAN 2 ML
     Route: 050
  2. TOPICAL EPINEPHRINE [Concomitant]

REACTIONS (7)
  - Blindness transient [Recovered/Resolved]
  - Ophthalmoplegia [Recovered/Resolved]
  - Eyelid ptosis [Recovered/Resolved]
  - Pallor [Recovered/Resolved]
  - Eye pain [Recovered/Resolved]
  - Pupils unequal [Recovered/Resolved]
  - Visual field defect [Recovered/Resolved]
